FAERS Safety Report 6062607-8 (Version None)
Quarter: 2009Q1

REPORT INFORMATION
  Report Type: 
  Country: None (occurrence: None)
  Receive Date: 20090203
  Receipt Date: 20090122
  Transmission Date: 20090719
  Serious: Yes (Other)
  Sender: FDA-Public Use
  Company Number: US-PFIZER INC-2008152843

PATIENT
  Age: 76 Year
  Sex: Female

DRUGS (6)
  1. AROMASIN [Suspect]
     Indication: BREAST CANCER
     Dosage: 25 MG, 2X/DAY
     Route: 048
  2. NORVASC [Concomitant]
     Dosage: UNK
  3. SYNTHROID [Concomitant]
     Dosage: UNK
  4. LAMICTAL [Concomitant]
     Dosage: UNK
  5. ZOLOFT [Concomitant]
     Dosage: UNK
  6. IBANDRONATE SODIUM [Concomitant]
     Dosage: UNK

REACTIONS (3)
  - CONVULSION [None]
  - CRANIOTOMY [None]
  - DYSPHAGIA [None]
